FAERS Safety Report 24535637 (Version 1)
Quarter: 2024Q4

REPORT INFORMATION
  Report Type: Spontaneous
  Country: US (occurrence: None)
  Receive Date: 20241022
  Receipt Date: 20241022
  Transmission Date: 20250115
  Serious: No
  Sender: Public
  Company Number: None

PATIENT

DRUGS (1)
  1. PHOSLO [Suspect]
     Active Substance: CALCIUM ACETATE

REACTIONS (2)
  - Drug ineffective [None]
  - Incorrect dose administered [None]
